FAERS Safety Report 9969826 (Version 1)
Quarter: 2014Q1

REPORT INFORMATION
  Report Type: Report from Study
  Country: US (occurrence: US)
  Receive Date: 20140306
  Receipt Date: 20140306
  Transmission Date: 20141002
  Serious: Yes (Hospitalization, Other)
  Sender: FDA-Public Use
  Company Number: US-JNJFOC-20140301316

PATIENT
  Age: 69 Year
  Sex: Female
  Weight: 121.11 kg

DRUGS (1)
  1. REMICADE [Suspect]
     Indication: RHEUMATOID ARTHRITIS
     Route: 042

REACTIONS (3)
  - Myocardial infarction [Recovered/Resolved]
  - Haemorrhage [Not Recovered/Not Resolved]
  - Atrial fibrillation [Unknown]
